FAERS Safety Report 6546959-8 (Version None)
Quarter: 2010Q1

REPORT INFORMATION
  Report Type: 
  Country: None (occurrence: None)
  Receive Date: 20100122
  Receipt Date: 20090805
  Transmission Date: 20100710
  Serious: Yes (Other)
  Sender: FDA-Public Use
  Company Number: A0840014A

PATIENT
  Age: 55 Year
  Sex: Female
  Weight: 70.5 kg

DRUGS (10)
  1. LAPATINIB [Suspect]
     Indication: BREAST CANCER
     Dosage: 1000MG PER DAY
     Route: 048
     Dates: start: 20090302, end: 20090621
  2. TRASTUZUMAB [Suspect]
     Indication: BREAST CANCER
     Dosage: 4MGK WEEKLY
     Route: 042
     Dates: start: 20090302, end: 20090601
  3. PACLITAXEL [Suspect]
     Indication: BREAST CANCER
     Dosage: 80MGM2 WEEKLY
     Route: 042
     Dates: start: 20090302, end: 20090601
  4. DECADRON [Concomitant]
  5. DIPHENHYDRAMINE [Concomitant]
  6. FAMOTIDINE [Concomitant]
  7. HYDROMORPHONE [Concomitant]
  8. LEVOTHYROXINE SODIUM [Concomitant]
  9. ONDANSETRON [Concomitant]
  10. PROCHLORPERAZINE [Concomitant]

REACTIONS (1)
  - CARDIAC FAILURE [None]
